FAERS Safety Report 13915154 (Version 1)
Quarter: 2017Q3

REPORT INFORMATION
  Report Type: Spontaneous
  Country: US (occurrence: US)
  Receive Date: 20170828
  Receipt Date: 20170828
  Transmission Date: 20171127
  Serious: Yes (Other)
  Sender: FDA-Public Use
  Company Number: None

PATIENT
  Age: 51 Year
  Sex: Female

DRUGS (8)
  1. NAPROXEN SODIUM. [Concomitant]
     Active Substance: NAPROXEN SODIUM
  2. METHYLPHENIDATE. [Concomitant]
     Active Substance: METHYLPHENIDATE
  3. METOPROLOL SUCCINATE. [Concomitant]
     Active Substance: METOPROLOL SUCCINATE
  4. ONDANSETRON [Concomitant]
     Active Substance: ONDANSETRON
  5. OXYCODONE IR [Concomitant]
     Active Substance: OXYCODONE
  6. ISOSORBIDE MONONITRATE. [Concomitant]
     Active Substance: ISOSORBIDE MONONITRATE
  7. DULOXETINE. [Concomitant]
     Active Substance: DULOXETINE
  8. CAPECITABINE. [Suspect]
     Active Substance: CAPECITABINE
     Indication: NEOPLASM MALIGNANT
     Route: 048
     Dates: start: 20170504, end: 20170828

REACTIONS (7)
  - Deep vein thrombosis [None]
  - Swelling [None]
  - Chest discomfort [None]
  - Erythema [None]
  - Peripheral swelling [None]
  - Dizziness [None]
  - Pain in extremity [None]

NARRATIVE: CASE EVENT DATE: 20170828
